FAERS Safety Report 24357378 (Version 1)
Quarter: 2024Q3

REPORT INFORMATION
  Report Type: Spontaneous
  Country: US (occurrence: US)
  Receive Date: 20240924
  Receipt Date: 20240924
  Transmission Date: 20241016
  Serious: No
  Sender: LAVIPHARM
  Company Number: US-Lavipharm SA-2161984

PATIENT
  Sex: Male

DRUGS (1)
  1. CATAPRES-TTS-2 [Suspect]
     Active Substance: CLONIDINE

REACTIONS (2)
  - Product dose omission issue [Unknown]
  - Product adhesion issue [Unknown]
